FAERS Safety Report 17103543 (Version 2)
Quarter: 2020Q1

REPORT INFORMATION
  Report Type: Spontaneous
  Country: US (occurrence: US)
  Receive Date: 20191203
  Receipt Date: 20200116
  Transmission Date: 20200409
  Serious: Yes (Other)
  Sender: FDA-Public Use
  Company Number: US-B.I. PHARMACEUTICALS,INC./RIDGEFIELD-2019-US-116283

PATIENT
  Sex: Female

DRUGS (1)
  1. JARDIANCE [Suspect]
     Active Substance: EMPAGLIFLOZIN
     Indication: PRODUCT USED FOR UNKNOWN INDICATION
     Route: 065
     Dates: start: 201911

REACTIONS (5)
  - Weight decreased [Unknown]
  - Sjogren^s syndrome [Unknown]
  - Paranasal sinus hypersecretion [Unknown]
  - Dry mouth [Unknown]
  - Thirst [Unknown]

NARRATIVE: CASE EVENT DATE: 201911
